FAERS Safety Report 5345329-8 (Version None)
Quarter: 2007Q2

REPORT INFORMATION
  Report Type: 
  Country: None (occurrence: None)
  Receive Date: 20070601
  Receipt Date: 20070601
  Transmission Date: 20071010
  Serious: Yes (Hospitalization)
  Sender: FDA-Public Use
  Company Number: None

PATIENT
  Age: 60 Year
  Sex: Female
  Weight: 50.3493 kg

DRUGS (9)
  1. BORTEZOMIB [Suspect]
     Indication: SQUAMOUS CELL CARCINOMA
     Dosage: 1.6MG/M2 IV DAYS 1+8
     Route: 042
     Dates: start: 20070510, end: 20070517
  2. DOCETAXEL [Suspect]
     Dosage: 40MG/M2 DAY 8
     Dates: start: 20070517
  3. PREVACID [Concomitant]
  4. PREMARIN [Concomitant]
  5. SYNTHROID [Concomitant]
  6. LEXAPRO [Concomitant]
  7. MEGACE [Concomitant]
  8. PHENERGAN HCL [Concomitant]
  9. KYTRIL [Concomitant]

REACTIONS (2)
  - DIARRHOEA [None]
  - HYPOTENSION [None]
